FAERS Safety Report 8695599 (Version 5)
Quarter: 2013Q3

REPORT INFORMATION
  Report Type: Report from Study
  Country: JP (occurrence: JP)
  Receive Date: 20120731
  Receipt Date: 20130912
  Transmission Date: 20140515
  Serious: Yes (Hospitalization, Other)
  Sender: FDA-Public Use
  Company Number: JP-JNJFOC-20120714209

PATIENT
  Age: 63 Year
  Sex: Female
  Weight: 56 kg

DRUGS (10)
  1. SIMPONI [Suspect]
     Indication: RHEUMATOID ARTHRITIS
     Route: 058
     Dates: start: 20120425, end: 20120723
  2. PROGRAF [Suspect]
     Indication: RHEUMATOID ARTHRITIS
     Route: 048
     Dates: end: 20120723
  3. PREDONINE [Suspect]
     Indication: RHEUMATOID ARTHRITIS
     Route: 048
     Dates: end: 20120111
  4. PREDONINE [Suspect]
     Indication: RHEUMATOID ARTHRITIS
     Route: 048
     Dates: start: 20120111, end: 20120723
  5. CRAVIT [Suspect]
     Indication: PNEUMONIA
     Route: 048
     Dates: start: 20120718, end: 20120818
  6. CRAVIT [Suspect]
     Indication: PNEUMONIA
     Route: 048
     Dates: start: 20120620, end: 20120626
  7. TACROLIMUS HYDRATE [Concomitant]
     Indication: RHEUMATOID ARTHRITIS
     Route: 065
  8. CELECOX [Concomitant]
     Indication: RHEUMATOID ARTHRITIS
     Route: 048
  9. AMLODIN [Concomitant]
     Indication: HYPERTENSION
     Route: 048
  10. BONALON [Concomitant]
     Indication: OSTEOPOROSIS

REACTIONS (2)
  - Pneumonia [Recovered/Resolved]
  - Hepatic function abnormal [Recovered/Resolved]
